FAERS Safety Report 11898885 (Version 1)
Quarter: 2016Q1

REPORT INFORMATION
  Report Type: Spontaneous
  Country: US (occurrence: US)
  Receive Date: 20160108
  Receipt Date: 20160108
  Transmission Date: 20160526
  Serious: Yes (Death)
  Sender: FDA-Public Use
  Company Number: US-ASTELLAS-2015US043792

PATIENT
  Age: 80 Year
  Sex: Male

DRUGS (1)
  1. XTANDI [Suspect]
     Active Substance: ENZALUTAMIDE
     Indication: PROSTATE CANCER
     Route: 048
     Dates: start: 20151009

REACTIONS (5)
  - Death [Fatal]
  - Speech disorder [Unknown]
  - Dyspnoea [Unknown]
  - Fatigue [Unknown]
  - Mental disorder [Unknown]

NARRATIVE: CASE EVENT DATE: 20151120
